FAERS Safety Report 21589323 (Version 1)
Quarter: 2022Q4

REPORT INFORMATION
  Report Type: Report from Study
  Country: MZ (occurrence: MZ)
  Receive Date: 20221114
  Receipt Date: 20221114
  Transmission Date: 20230113
  Serious: Yes (Other)
  Sender: FDA-Public Use
  Company Number: MZ-CIPLA LTD.-2022MZ06658

PATIENT
  Age: 17 Year
  Sex: Female

DRUGS (6)
  1. ALBENDAZOLE [Suspect]
     Active Substance: ALBENDAZOLE
     Indication: Malaria
     Dosage: 400 MILLIGRAM, SINGLE DOSE, ONCE IN A MONTH FOR 3 MONTHS
     Route: 048
     Dates: start: 20220406, end: 20220505
  2. SULFAMETHOXAZOLE AND TRIMETHOPRIM [Concomitant]
     Active Substance: SULFAMETHOXAZOLE\TRIMETHOPRIM
     Indication: Opportunistic infection prophylaxis
     Dosage: 2 DOSAGE FORM, QD
     Route: 048
     Dates: start: 20220708
  3. FERROUS SULPHATE + FOLIC ACID [Concomitant]
     Indication: Anaemia prophylaxis
     Dosage: 1 DOSAGE FORM, QD
     Route: 048
     Dates: start: 20220908, end: 20221110
  4. TETANUS TOXOID ADSORBED (VACCINE) [Concomitant]
     Active Substance: CLOSTRIDIUM TETANI TOXOID ANTIGEN (FORMALDEHYDE INACTIVATED)
     Indication: Malaria prophylaxis
     Dosage: 0.5 MILLILITER, SINGLE
     Route: 030
     Dates: start: 20220708, end: 20220708
  5. DOLUTEGRAVIR SODIUM;LAMIVUDINE;TENOFOVIR DISOPROXIL FUMARATE [Concomitant]
     Indication: HIV infection
     Dosage: 1 DOSAGE FORM, QD
     Route: 048
     Dates: start: 20220608
  6. PENICILLIN G BENZATHINE [Concomitant]
     Active Substance: PENICILLIN G BENZATHINE
     Indication: Syphilis
     Dosage: 2, 400000 INTERNATIONAL UNIT, SINGLE
     Route: 030
     Dates: start: 20220708, end: 20220708

REACTIONS (2)
  - Stillbirth [Unknown]
  - Maternal exposure during pregnancy [Unknown]

NARRATIVE: CASE EVENT DATE: 20221012
